FAERS Safety Report 4939227-9 (Version None)
Quarter: 2006Q1

REPORT INFORMATION
  Report Type: 
  Country: None (occurrence: None)
  Receive Date: 20060306
  Receipt Date: 20060220
  Transmission Date: 20060701
  Serious: Yes (Death, Hospitalization)
  Sender: FDA-Public Use
  Company Number: GB200602002429

PATIENT
  Age: 71 Year
  Sex: Female

DRUGS (3)
  1. FORTEO [Suspect]
     Indication: OSTEOPOROSIS
     Dosage: 20 UG, DAILY (1/D), UNK
     Route: 065
  2. FORTEO PEN (FORTEO PEN) [Concomitant]
  3. PREDNISOLONE [Concomitant]

REACTIONS (6)
  - COMA [None]
  - DIVERTICULAR PERFORATION [None]
  - FASCIITIS [None]
  - GENERAL PHYSICAL HEALTH DETERIORATION [None]
  - PERITONITIS [None]
  - SEPTIC SHOCK [None]
